FAERS Safety Report 23649730 (Version 3)
Quarter: 2024Q2

REPORT INFORMATION
  Report Type: Report from Study
  Country: KR (occurrence: KR)
  Receive Date: 20240319
  Receipt Date: 20240619
  Transmission Date: 20240716
  Serious: Yes (Hospitalization, Other)
  Sender: FDA-Public Use
  Company Number: KR-BR-2024-0068

PATIENT
  Age: 47 Year
  Sex: Male
  Weight: 80 kg

DRUGS (6)
  1. LURBINECTEDIN [Suspect]
     Active Substance: LURBINECTEDIN
     Indication: Small cell lung cancer
     Dosage: 3.2 MILLIGRAM/SQ. METER, Q3W
     Route: 042
     Dates: start: 20231101, end: 20231122
  2. NORVASK [AMLODIPINE BESILATE] [Concomitant]
     Indication: Hypertension
     Dosage: 2.5 MILLIGRAM, QD
     Route: 048
     Dates: start: 20231101
  3. URCHOL [Concomitant]
     Indication: Prophylaxis
     Dosage: 100 MILLIGRAM, BID
     Route: 048
     Dates: start: 20231101, end: 20231215
  4. FLUTICASONE FUROATE\VILANTEROL TRIFENATATE [Concomitant]
     Active Substance: FLUTICASONE FUROATE\VILANTEROL TRIFENATATE
     Indication: Asthma
     Dosage: 25 MICROGRAM, PRN
     Route: 048
     Dates: start: 20231101
  5. PALSERON [Concomitant]
     Indication: Prophylaxis of nausea and vomiting
     Dosage: 0.25 MILLIGRAM, QD
     Route: 042
     Dates: start: 20231122, end: 20231122
  6. GASMOTIN [LEVOSULPIRIDE] [Concomitant]
     Indication: Prophylaxis
     Dosage: 5 MILLIGRAM, Q8H
     Route: 048
     Dates: start: 20231101

REACTIONS (1)
  - Asthenia [Recovered/Resolved]

NARRATIVE: CASE EVENT DATE: 20231209
